FAERS Safety Report 9076152 (Version 1)
Quarter: 2013Q1

REPORT INFORMATION
  Report Type: Report from Study
  Country: US (occurrence: US)
  Receive Date: 20130129
  Receipt Date: 20130129
  Transmission Date: 20140127
  Serious: No
  Sender: FDA-Public Use
  Company Number: US-ABBOTT-12P-163-0929610-00

PATIENT
  Sex: Male

DRUGS (9)
  1. HUMIRA 40 MG/0.8 ML PEN [Suspect]
     Indication: PSORIASIS
     Dates: start: 20120222, end: 20120222
  2. HUMIRA 40 MG/0.8 ML PEN [Suspect]
     Dates: start: 20120228, end: 20120228
  3. HUMIRA 40 MG/0.8 ML PEN [Suspect]
     Dates: start: 20120321, end: 20120321
  4. HUMIRA 40 MG/0.8 ML PEN [Suspect]
     Dates: start: 20120405
  5. BENADRYL [Concomitant]
     Indication: HYPERSENSITIVITY
     Dosage: 2 IN THE MORNING
  6. UNKNOWN ALLERGY MEDICATION [Concomitant]
     Indication: HYPERSENSITIVITY
  7. ALBUTEROL [Concomitant]
     Indication: HYPERSENSITIVITY
  8. IPRUOPUM BROMIDE NASAL SPRAY [Concomitant]
     Indication: PRODUCT USED FOR UNKNOWN INDICATION
  9. ALEVE [Concomitant]
     Indication: PAIN

REACTIONS (8)
  - Feeling jittery [Not Recovered/Not Resolved]
  - Tremor [Not Recovered/Not Resolved]
  - Dizziness [Not Recovered/Not Resolved]
  - Balance disorder [Not Recovered/Not Resolved]
  - Formication [Not Recovered/Not Resolved]
  - Tremor [Not Recovered/Not Resolved]
  - Gait disturbance [Not Recovered/Not Resolved]
  - Weight decreased [Not Recovered/Not Resolved]
